FAERS Safety Report 14110536 (Version 1)
Quarter: 2017Q4

REPORT INFORMATION
  Report Type: Spontaneous
  Country: JP (occurrence: JP)
  Receive Date: 20171020
  Receipt Date: 20171020
  Transmission Date: 20180321
  Serious: Yes (Death, Life-Threatening, Hospitalization)
  Sender: FDA-Public Use
  Company Number: JP-JNJFOC-20171018448

PATIENT
  Age: 90 Year
  Sex: Female
  Weight: 34 kg

DRUGS (4)
  1. ASPARA POTASSIUM [Concomitant]
     Active Substance: POTASSIUM ASPARTATE
     Dosage: STARTED BEFORE ADMINISTRATION OF CANAGLIFLOZIN
     Route: 048
     Dates: end: 20170506
  2. AMLODIPINE [Concomitant]
     Active Substance: AMLODIPINE BESYLATE
     Dosage: STARTED BEFORE ADMINISTRATION OF CANAGLIFLOZIN
     Route: 048
     Dates: end: 20170506
  3. CANAGLU [Suspect]
     Active Substance: CANAGLIFLOZIN
     Indication: TYPE 2 DIABETES MELLITUS
     Route: 048
     Dates: start: 20160808, end: 20170318
  4. PLETAAL [Concomitant]
     Active Substance: CILOSTAZOL
     Dosage: STARTED BEFORE ADMINISTRATION OF CANAGLIFLOZIN
     Route: 048
     Dates: end: 20170506

REACTIONS (2)
  - Respiratory failure [Fatal]
  - Electrolyte imbalance [Not Recovered/Not Resolved]

NARRATIVE: CASE EVENT DATE: 20170318
